FAERS Safety Report 21068279 (Version 1)
Quarter: 2022Q3

REPORT INFORMATION
  Report Type: Spontaneous
  Country: TH (occurrence: None)
  Receive Date: 20220712
  Receipt Date: 20220712
  Transmission Date: 20221026
  Serious: Yes (Other)
  Sender: FDA-Public Use
  Company Number: 2022A246961

PATIENT
  Age: 47 Year
  Sex: Female

DRUGS (1)
  1. GEFITINIB [Suspect]
     Active Substance: GEFITINIB
     Indication: Adenocarcinoma metastatic
     Route: 048

REACTIONS (5)
  - Malignant neoplasm progression [Unknown]
  - Metastases to spinal cord [Unknown]
  - Metastases to central nervous system [Unknown]
  - Gene mutation [Unknown]
  - Drug resistance [Unknown]
